FAERS Safety Report 8916521 (Version 1)
Quarter: 2012Q4

REPORT INFORMATION
  Report Type: 
  Country: US (occurrence: US)
  Receive Date: 20121120
  Receipt Date: 20121120
  Transmission Date: 20130627
  Serious: Yes (Other)
  Sender: FDA-Public Use
  Company Number: US-TEVA-370749USA

PATIENT
  Age: 31 None
  Sex: Female
  Weight: 61.29 kg

DRUGS (2)
  1. PARAGARD 380A [Suspect]
     Indication: CONTRACEPTION
     Route: 015
     Dates: start: 201207, end: 20120908
  2. CELEXA [Concomitant]
     Indication: ANXIETY
     Dosage: 20 Milligram Daily;
     Route: 048

REACTIONS (9)
  - Staphylococcal infection [Not Recovered/Not Resolved]
  - Furuncle [Not Recovered/Not Resolved]
  - Dermal cyst [Not Recovered/Not Resolved]
  - Loss of consciousness [Recovered/Resolved]
  - Dizziness [Recovered/Resolved]
  - Anxiety [Recovered/Resolved]
  - Tremor [Recovered/Resolved]
  - Menorrhagia [Recovered/Resolved]
  - Dysmenorrhoea [Recovered/Resolved]
